FAERS Safety Report 11270957 (Version 2)
Quarter: 2015Q3

REPORT INFORMATION
  Report Type: Spontaneous
  Country: US (occurrence: US)
  Receive Date: 20150714
  Receipt Date: 20150717
  Transmission Date: 20151125
  Serious: Yes (Hospitalization, Congenital Anomaly, Other)
  Sender: FDA-Public Use
  Company Number: US-APOTEX-2015AP008729

PATIENT
  Sex: Female
  Weight: 2 kg

DRUGS (2)
  1. PRENATAL VITAMINS                  /07426201/ [Concomitant]
     Active Substance: ASCORBIC ACID\BIOTIN\MINERALS\NIACIN\RETINOL\TOCOPHEROL\VITAMIN B\VITAMIN D
     Indication: PRODUCT USED FOR UNKNOWN INDICATION
     Dosage: UNK
     Route: 064
     Dates: end: 2003
  2. PAXIL [Suspect]
     Active Substance: PAROXETINE HYDROCHLORIDE
     Indication: ANXIETY
     Dosage: 20 MG, DAILY
     Route: 064
     Dates: end: 2003

REACTIONS (11)
  - Speech disorder developmental [Unknown]
  - Craniofacial deformity [Unknown]
  - Otitis media [Unknown]
  - Atrial septal defect [Unknown]
  - Foetal growth restriction [Unknown]
  - Foetal exposure during pregnancy [Unknown]
  - Microtia [Unknown]
  - Microstomia [Unknown]
  - Microgenia [Unknown]
  - Heart disease congenital [Unknown]
  - Ear malformation [Unknown]
